FAERS Safety Report 7772067-4 (Version None)
Quarter: 2011Q3

REPORT INFORMATION
  Report Type: 
  Country: None (occurrence: None)
  Receive Date: 20110922
  Receipt Date: 20100901
  Transmission Date: 20111222
  Serious: Yes (Hospitalization)
  Sender: FDA-Public Use
  Company Number: US-ASTRAZENECA-2009SE25215

PATIENT
  Age: 45 Year
  Sex: Female
  Weight: 65.8 kg

DRUGS (6)
  1. SEROQUEL [Suspect]
     Indication: DEPRESSION
     Route: 048
     Dates: start: 20040101, end: 20050101
  2. NEURONTIN [Concomitant]
     Route: 048
     Dates: start: 20040726
  3. REMERON [Concomitant]
     Route: 048
     Dates: start: 20040726
  4. TRAZODONE HYDROCHLORIDE [Concomitant]
     Route: 048
     Dates: start: 20040726
  5. CITALOPRAM HYDROBROMIDE [Concomitant]
     Route: 048
     Dates: start: 20040726
  6. SEROQUEL [Suspect]
     Route: 048
     Dates: start: 20040726

REACTIONS (2)
  - TYPE 2 DIABETES MELLITUS [None]
  - HYPOGLYCAEMIA [None]
